FAERS Safety Report 5904221-8 (Version None)
Quarter: 2008Q3

REPORT INFORMATION
  Report Type: 
  Country: None (occurrence: None)
  Receive Date: 20080930
  Receipt Date: 20080930
  Transmission Date: 20090109
  Serious: Yes (Other)
  Sender: FDA-Public Use
  Company Number: None

PATIENT
  Age: 57 Year
  Sex: Female
  Weight: 60.3284 kg

DRUGS (3)
  1. ENBREL [Suspect]
     Dosage: 50MG SC QWEEK
     Route: 058
  2. ACTONEL [Concomitant]
  3. LIPITOR [Concomitant]

REACTIONS (1)
  - T-CELL CHRONIC LYMPHOCYTIC LEUKAEMIA [None]
